FAERS Safety Report 8529957-4 (Version None)
Quarter: 2012Q3

REPORT INFORMATION
  Report Type: 
  Country: None (occurrence: None)
  Receive Date: 20120723
  Receipt Date: 20120712
  Transmission Date: 20120928
  Serious: Yes (Death, Hospitalization)
  Sender: FDA-Public Use
  Company Number: US-BRISTOL-MYERS SQUIBB COMPANY-16448656

PATIENT
  Age: 50 Year
  Sex: Female
  Weight: 132 kg

DRUGS (11)
  1. SORAFENIB [Suspect]
     Indication: BREAST CANCER
     Dosage: COURSE NUMBER: 1.
     Route: 048
     Dates: start: 20120215, end: 20120217
  2. CELEBREX [Concomitant]
     Indication: ARTHRITIS
     Dates: start: 20100101
  3. FISH OIL [Concomitant]
     Indication: SUPPLEMENTATION THERAPY
     Dates: start: 20100101
  4. VITAMIN D [Concomitant]
     Indication: SUPPLEMENTATION THERAPY
     Dosage: 1 DF : 1000 U
     Dates: start: 20080101
  5. IXABEPILONE [Suspect]
     Indication: BREAST CANCER
     Dosage: RECENT DOSE: 15FEB12, 71 MG
     Route: 042
     Dates: start: 20120215, end: 20120215
  6. GAS-X [Concomitant]
     Dates: start: 20110101
  7. PROPRANOLOL [Concomitant]
     Indication: HYPERTENSION
     Dates: start: 20080101
  8. EXCEDRIN (MIGRAINE) [Concomitant]
     Indication: HEADACHE
     Dosage: 1 DF : 2TABS
     Dates: start: 20080101
  9. ZOLOFT [Concomitant]
     Indication: MENOPAUSAL SYMPTOMS
     Dates: start: 20090101
  10. FERROUS SULFATE TAB [Concomitant]
     Indication: ANAEMIA
     Dates: start: 20110101
  11. OMEPRAZOLE [Concomitant]
     Indication: GASTROOESOPHAGEAL REFLUX DISEASE
     Dates: start: 20110101

REACTIONS (2)
  - DEATH [None]
  - RENAL FAILURE [None]
